FAERS Safety Report 6545823-8 (Version None)
Quarter: 2010Q1

REPORT INFORMATION
  Report Type: 
  Country: None (occurrence: None)
  Receive Date: 20100121
  Receipt Date: 20100114
  Transmission Date: 20100710
  Serious: Yes (Hospitalization)
  Sender: FDA-Public Use
  Company Number: US-ELI_LILLY_AND_COMPANY-US201001003564

PATIENT
  Sex: Female

DRUGS (2)
  1. HUMALOG [Suspect]
     Dosage: UNK, 4/D
  2. HUMALOG [Suspect]
     Dates: start: 20100113, end: 20100113

REACTIONS (7)
  - ARTHROPATHY [None]
  - GLOSSITIS [None]
  - HYPERSENSITIVITY [None]
  - INTERCEPTED DRUG DISPENSING ERROR [None]
  - MUSCULAR WEAKNESS [None]
  - STAPHYLOCOCCAL SEPSIS [None]
  - STOMATITIS [None]
